FAERS Safety Report 9314753 (Version 1)
Quarter: 2013Q2

REPORT INFORMATION
  Report Type: Spontaneous
  Country: US (occurrence: US)
  Receive Date: 20130529
  Receipt Date: 20130530
  Transmission Date: 20140414
  Serious: Yes (Other)
  Sender: FDA-Public Use
  Company Number: US-RB-054714-13

PATIENT
  Age: 15 Year
  Sex: Female

DRUGS (1)
  1. MUCINEX - GENERAL [Suspect]
     Indication: DRUG ABUSE
     Dosage: TOOK COMMONLY TAKES 20 OF PRODUCT AT A TIME, AND ONCE TOOK 65.

REACTIONS (3)
  - Drug abuse [Unknown]
  - Memory impairment [Unknown]
  - Dizziness [Unknown]
